FAERS Safety Report 12264159 (Version 1)
Quarter: 2016Q2

REPORT INFORMATION
  Report Type: Spontaneous
  Country: US (occurrence: US)
  Receive Date: 20160413
  Receipt Date: 20160413
  Transmission Date: 20160815
  Serious: No
  Sender: FDA-Public Use
  Company Number: US-JNJFOC-20160223620

PATIENT
  Age: 28 Year
  Sex: Female
  Weight: 67 kg

DRUGS (2)
  1. WOMENS ROGAINE [Suspect]
     Active Substance: MINOXIDIL
     Route: 061
  2. WOMENS ROGAINE [Suspect]
     Active Substance: MINOXIDIL
     Indication: ALOPECIA
     Dosage: ONCE
     Route: 061
     Dates: start: 20160222

REACTIONS (3)
  - Product use issue [Unknown]
  - Expired product administered [Unknown]
  - Off label use [Unknown]
